FAERS Safety Report 9573605 (Version 1)
Quarter: 2013Q4

REPORT INFORMATION
  Report Type: Spontaneous
  Country: IT (occurrence: IT)
  Receive Date: 20131001
  Receipt Date: 20131001
  Transmission Date: 20140711
  Serious: Yes (Other)
  Sender: FDA-Public Use
  Company Number: IT-TEVA-434293ISR

PATIENT
  Age: 61 Year
  Sex: Male

DRUGS (5)
  1. OXALIPLATINO TEVA [Suspect]
     Indication: COLON CANCER
     Dosage: 247MG, CYCLICAL
     Route: 042
     Dates: start: 20130513, end: 20130603
  2. XELODA [Suspect]
     Indication: COLON CANCER
     Dosage: 53200MG, CYCLICAL
     Route: 048
     Dates: start: 20130513, end: 20130603
  3. SOLDESAM [Concomitant]
     Dosage: 4 MILLIGRAM DAILY;
     Route: 042
  4. RANIDIL [Concomitant]
     Dosage: 50 MILLIGRAM DAILY;
     Route: 042
  5. ONDANSETRONE HIKMA [Concomitant]
     Route: 040

REACTIONS (11)
  - Nausea [Unknown]
  - Vomiting [Unknown]
  - Formication [Unknown]
  - Skin exfoliation [Unknown]
  - Glossodynia [Unknown]
  - Constipation [Unknown]
  - Pain in extremity [Unknown]
  - Pruritus generalised [Unknown]
  - Dyspnoea [Unknown]
  - Asthenia [Unknown]
  - Skin exfoliation [Unknown]
